FAERS Safety Report 17622555 (Version 1)
Quarter: 2020Q2

REPORT INFORMATION
  Report Type: Spontaneous
  Country: BE (occurrence: BE)
  Receive Date: 20200403
  Receipt Date: 20200403
  Transmission Date: 20200713
  Serious: Yes (Disabling)
  Sender: FDA-Public Use
  Company Number: BE-SA-2020SA081820

PATIENT
  Age: 30 Year
  Sex: Male
  Weight: 84 kg

DRUGS (2)
  1. LEVOCETIRIZINE [Suspect]
     Active Substance: LEVOCETIRIZINE
     Indication: UPPER RESPIRATORY TRACT INFLAMMATION
     Dosage: 2 DF, QD
     Route: 048
     Dates: start: 20200305, end: 20200309
  2. TOULARYNX DEXTROMETHORPHAN [Concomitant]

REACTIONS (5)
  - Dry mouth [Recovered/Resolved]
  - Overdose [Unknown]
  - Rhinalgia [Recovered/Resolved]
  - Somnolence [Recovered/Resolved]
  - Intentional product misuse [Unknown]

NARRATIVE: CASE EVENT DATE: 20200305
